FAERS Safety Report 4820591-6 (Version None)
Quarter: 2005Q4

REPORT INFORMATION
  Report Type: 
  Country: None (occurrence: None)
  Receive Date: 20051102
  Receipt Date: 20051102
  Transmission Date: 20060501
  Serious: Yes (Hospitalization)
  Sender: FDA-Public Use
  Company Number: None

PATIENT
  Age: 67 Year
  Sex: Male
  Weight: 85.5 kg

DRUGS (11)
  1. DILTIAZEM [Suspect]
     Dosage: 120 MG Q DAY PO
     Route: 048
     Dates: start: 20050708, end: 20050831
  2. DILTIAZEM [Suspect]
     Dosage: 30 MG PM PO
     Route: 048
     Dates: start: 20050708, end: 20050831
  3. WARFARIN [Concomitant]
  4. METOPROLOL SR [Concomitant]
  5. GEMFIBROXIL [Concomitant]
  6. SIMVASTATIN [Concomitant]
  7. POTASSIUM CHLORIDE [Concomitant]
  8. FUROSEMIDE [Concomitant]
  9. QUINAPRIL [Concomitant]
  10. TERAZOSIN [Concomitant]
  11. APAP TAB [Concomitant]

REACTIONS (5)
  - ATRIAL FIBRILLATION [None]
  - ATRIOVENTRICULAR BLOCK [None]
  - CHEST PAIN [None]
  - HEART RATE DECREASED [None]
  - SINUS BRADYCARDIA [None]
